FAERS Safety Report 12799364 (Version 1)
Quarter: 2016Q3

REPORT INFORMATION
  Report Type: Spontaneous
  Country: ES (occurrence: ES)
  Receive Date: 20160930
  Receipt Date: 20160930
  Transmission Date: 20161109
  Serious: Yes (Other)
  Sender: FDA-Public Use
  Company Number: ES-JNJFOC-20160929028

PATIENT
  Age: 68 Year
  Sex: Female

DRUGS (1)
  1. VOKANAMET [Suspect]
     Active Substance: CANAGLIFLOZIN\METFORMIN HYDROCHLORIDE
     Indication: TYPE 2 DIABETES MELLITUS
     Dosage: 50/850 MG TWICE A DAY (CANAGLIFLOZIN 100 MG)
     Route: 065

REACTIONS (4)
  - Hypoglycaemia [Recovered/Resolved]
  - Metabolic syndrome [Unknown]
  - Vaginal discharge [Recovered/Resolved]
  - Vulvovaginal pruritus [Recovered/Resolved]
